FAERS Safety Report 5917322-5 (Version None)
Quarter: 2008Q4

REPORT INFORMATION
  Report Type: 
  Country: None (occurrence: None)
  Receive Date: 20081014
  Receipt Date: 20081008
  Transmission Date: 20090506
  Serious: Yes (Death, Hospitalization)
  Sender: FDA-Public Use
  Company Number: US-ELI_LILLY_AND_COMPANY-US200810000258

PATIENT
  Sex: Male
  Weight: 83.6 kg

DRUGS (24)
  1. PEMETREXED [Suspect]
     Indication: NON-SMALL CELL LUNG CANCER
     Dosage: 975 MG/M2, OTHER
     Route: 042
     Dates: start: 20080728, end: 20080909
  2. FOLIC ACID [Concomitant]
     Dosage: 400 MG, DAILY (1/D)
  3. VITAMIN B-12 [Concomitant]
  4. DEXAMETHASONE [Concomitant]
  5. ALOXI [Concomitant]
     Indication: NAUSEA
     Dates: start: 20080728
  6. DIPHENHYDRAMINE HCL [Concomitant]
  7. PAROXETINE HCL [Concomitant]
     Dosage: 30 MG, UNK
  8. LISINOPRIL [Concomitant]
     Indication: CARDIAC FAILURE
     Dosage: 10 MG, UNK
  9. CARVEDILOL [Concomitant]
     Indication: CARDIAC DISORDER
     Dosage: 125 MG, UNK
  10. ZETIA [Concomitant]
     Indication: BLOOD CHOLESTEROL INCREASED
     Dosage: 10 MG, UNK
  11. SPIRONOLACTONE [Concomitant]
     Indication: HYPERTENSION
  12. ASPIRIN [Concomitant]
     Dosage: 81 MG, DAILY (1/D)
  13. PREDNISONE [Concomitant]
     Indication: PULMONARY FIBROSIS
     Dosage: 20 MG, EACH MORNING
  14. PREDNISONE [Concomitant]
     Dosage: 10 MG, EACH EVENING
  15. FISH OIL [Concomitant]
     Indication: BLOOD CHOLESTEROL
  16. WARFARIN SODIUM [Concomitant]
  17. OXYGEN [Concomitant]
  18. BLOOD TRANSFUSION, AUXILIARY PRODUCTS [Concomitant]
     Dosage: 2 U, UNK
     Dates: start: 20080916, end: 20080916
  19. LASIX [Concomitant]
     Dosage: 40 MG, DAILY (1/D)
  20. LIPITOR [Concomitant]
     Dosage: 40 MG, DAILY (1/D)
  21. OXYCODONE HCL [Concomitant]
     Indication: BREAKTHROUGH PAIN
  22. OXYCONTIN [Concomitant]
  23. ENULOSE [Concomitant]
     Dosage: 15 MG, DAILY (1/D)
  24. LANTUS [Concomitant]
     Dosage: 22 U, EACH EVENING

REACTIONS (4)
  - BACK PAIN [None]
  - CARDIOPULMONARY FAILURE [None]
  - EPISTAXIS [None]
  - THROMBOCYTOPENIA [None]
